FAERS Safety Report 25626231 (Version 3)
Quarter: 2025Q3

REPORT INFORMATION
  Report Type: Report from Study
  Country: CA (occurrence: CA)
  Receive Date: 20250731
  Receipt Date: 20250922
  Transmission Date: 20251021
  Serious: Yes (Other)
  Sender: AMGEN
  Company Number: CA-AMGEN-CANSL2025139210

PATIENT
  Age: 30 Year
  Sex: Male
  Weight: 107.5 kg

DRUGS (3)
  1. AVSOLA [Suspect]
     Active Substance: INFLIXIMAB-AXXQ
     Indication: Colitis ulcerative
     Dosage: 7 MILLIGRAM/KILOGRAM, Q6WK
     Route: 065
     Dates: start: 20220606
  2. AVSOLA [Suspect]
     Active Substance: INFLIXIMAB-AXXQ
     Dosage: 10 MILLIGRAM/KILOGRAM, Q6WK, DAY-0 AND DAY 14 THEN EVERY 6 WEEK
     Route: 065
  3. AVSOLA [Suspect]
     Active Substance: INFLIXIMAB-AXXQ
     Route: 065
     Dates: start: 20250917

REACTIONS (4)
  - Colitis ulcerative [Unknown]
  - Gastroenteritis cryptosporidial [Recovered/Resolved]
  - Haematochezia [Not Recovered/Not Resolved]
  - Off label use [Unknown]

NARRATIVE: CASE EVENT DATE: 20220606
